FAERS Safety Report 9455803 (Version 1)
Quarter: 2013Q3

REPORT INFORMATION
  Report Type: Spontaneous
  Country: US (occurrence: US)
  Receive Date: 20130813
  Receipt Date: 20130813
  Transmission Date: 20140515
  Serious: No
  Sender: FDA-Public Use
  Company Number: US-PFIZER INC-2013233506

PATIENT
  Sex: Female

DRUGS (3)
  1. NORVASC [Suspect]
     Dosage: 5 MG, UNK
  2. NORVASC [Suspect]
     Dosage: 2.5 MG, UNK
  3. LEVEMIR FLEXPEN [Suspect]
     Dosage: UNK
     Dates: start: 201305

REACTIONS (1)
  - Joint swelling [Unknown]
